FAERS Safety Report 9301971 (Version 3)
Quarter: 2013Q3

REPORT INFORMATION
  Report Type: Spontaneous
  Country: US (occurrence: US)
  Receive Date: 20130521
  Receipt Date: 20130716
  Transmission Date: 20140515
  Serious: Yes (Hospitalization)
  Sender: FDA-Public Use
  Company Number: US-MERCK-1305USA010721

PATIENT
  Age: 7 Year
  Sex: Female
  Weight: 31.6 kg

DRUGS (2)
  1. TEMODAR [Suspect]
     Indication: ASTROCYTOMA
     Dosage: 220 MG, QD FOR 5 DAYS
     Route: 048
     Dates: start: 20130425, end: 20130429
  2. AVASTIN (BEVACIZUMAB) [Suspect]
     Indication: ASTROCYTOMA
     Dosage: UNK
     Dates: start: 20130509

REACTIONS (7)
  - Rotavirus infection [Recovering/Resolving]
  - Muscular weakness [Unknown]
  - Metabolic acidosis [Recovering/Resolving]
  - Alopecia [Unknown]
  - Facial asymmetry [Unknown]
  - Muscular weakness [Unknown]
  - Hypotonia [Unknown]
